FAERS Safety Report 4837328-7 (Version None)
Quarter: 2005Q4

REPORT INFORMATION
  Report Type: 
  Country: None (occurrence: None)
  Receive Date: 20051122
  Receipt Date: 20051109
  Transmission Date: 20060501
  Serious: Yes (Death)
  Sender: FDA-Public Use
  Company Number: 05-0137PO

PATIENT
  Age: 42 Year
  Sex: Female

DRUGS (1)
  1. MEFENAMIC ACID [Suspect]
     Indication: DYSMENORRHOEA
     Dosage: 500 MG

REACTIONS (2)
  - ACCIDENTAL OVERDOSE [None]
  - SUDDEN DEATH [None]
